FAERS Safety Report 5236464-3 (Version None)
Quarter: 2007Q1

REPORT INFORMATION
  Report Type: 
  Country: None (occurrence: None)
  Receive Date: 20061208
  Receipt Date: 20060609
  Transmission Date: 20070707
  Serious: Yes (Other)
  Sender: FDA-Public Use
  Company Number: 2006UW12411

PATIENT
  Age: 47 Year
  Sex: Female
  Weight: 71.214 kg

DRUGS (3)
  1. CRESTOR [Suspect]
     Indication: HYPERCHOLESTEROLAEMIA
     Dosage: 10 MG QD PO
     Route: 048
     Dates: start: 20060301
  2. UNIVASC [Concomitant]
  3. AMARYL [Concomitant]

REACTIONS (3)
  - DIZZINESS [None]
  - DYSPEPSIA [None]
  - EPHELIDES [None]
